FAERS Safety Report 10024520 (Version 1)
Quarter: 2014Q1

REPORT INFORMATION
  Report Type: Spontaneous
  Country: US (occurrence: US)
  Receive Date: 20140320
  Receipt Date: 20140320
  Transmission Date: 20141002
  Serious: No
  Sender: FDA-Public Use
  Company Number: US-ENDO PHARMACEUTICALS INC.-OPCR20130442

PATIENT
  Sex: Female

DRUGS (3)
  1. OPANA ER 20MG [Suspect]
     Indication: BACK PAIN
     Route: 048
  2. LISINOPRIL [Concomitant]
     Indication: PRODUCT USED FOR UNKNOWN INDICATION
     Dosage: UNK
     Route: 048
  3. OPANA ER 20MG [Concomitant]
     Indication: BACK PAIN
     Route: 048
     Dates: start: 2011

REACTIONS (3)
  - Drug screen negative [Not Recovered/Not Resolved]
  - Inappropriate schedule of drug administration [Recovered/Resolved]
  - Drug effect decreased [Not Recovered/Not Resolved]
